FAERS Safety Report 9504250 (Version 6)
Quarter: 2014Q3

REPORT INFORMATION
  Report Type: Spontaneous
  Country: US (occurrence: US)
  Receive Date: 20130906
  Receipt Date: 20140909
  Transmission Date: 20150326
  Serious: Yes (Death, Hospitalization, Other)
  Sender: FDA-Public Use
  Company Number: US-009507513-1203USA03983

PATIENT
  Sex: Female
  Weight: 66.67 kg

DRUGS (3)
  1. FOSAMAX [Suspect]
     Active Substance: ALENDRONATE SODIUM
     Dosage: 70 MG, AS DIRECTED
     Route: 048
     Dates: start: 20090624
  2. FOSAMAX [Suspect]
     Active Substance: ALENDRONATE SODIUM
     Indication: OSTEOPOROSIS
     Dosage: 70 MG, UNK
     Route: 048
     Dates: start: 200307, end: 200803
  3. ALENDRONATE SODIUM. [Suspect]
     Active Substance: ALENDRONATE SODIUM
     Indication: OSTEOPOROSIS
     Dosage: 70 MG, QW
     Route: 048

REACTIONS (24)
  - Death [Fatal]
  - Lacunar infarction [Unknown]
  - Femur fracture [Unknown]
  - Intramedullary rod insertion [Unknown]
  - Hip fracture [Recovered/Resolved]
  - White matter lesion [Not Recovered/Not Resolved]
  - Anaemia [Not Recovered/Not Resolved]
  - Fall [Unknown]
  - Open reduction of fracture [Recovered/Resolved with Sequelae]
  - Vitamin D deficiency [Unknown]
  - Urine analysis abnormal [Unknown]
  - Hypokalaemia [Unknown]
  - Anxiety [Unknown]
  - Depression [Unknown]
  - Atrioventricular block first degree [Unknown]
  - Gastrooesophageal reflux disease [Unknown]
  - Incontinence [Unknown]
  - Fall [Unknown]
  - Vascular calcification [Unknown]
  - Dyslipidaemia [Unknown]
  - Dementia [Unknown]
  - Hysterectomy [Unknown]
  - Hypertension [Unknown]
  - Insomnia [Not Recovered/Not Resolved]

NARRATIVE: CASE EVENT DATE: 2010
